FAERS Safety Report 18081027 (Version 2)
Quarter: 2020Q3

REPORT INFORMATION
  Report Type: Spontaneous
  Country: AT (occurrence: AT)
  Receive Date: 20200728
  Receipt Date: 20200809
  Transmission Date: 20201103
  Serious: Yes (Hospitalization)
  Sender: FDA-Public Use
  Company Number: NVSC2020AT208786

PATIENT
  Age: 59 Year
  Sex: Male
  Weight: 85 kg

DRUGS (17)
  1. ANAEROBEX [Concomitant]
     Active Substance: METRONIDAZOLE
     Indication: PRODUCT USED FOR UNKNOWN INDICATION
     Dosage: 500 MG, QD (0?0?1)
     Route: 065
     Dates: start: 20200623, end: 20200623
  2. ANAEROBEX [Concomitant]
     Active Substance: METRONIDAZOLE
     Dosage: 500 MG, QD (1?0?0)
     Route: 065
     Dates: start: 20200623, end: 20200623
  3. CIPROXIN [Concomitant]
     Active Substance: CIPROFLOXACIN
     Indication: PRODUCT USED FOR UNKNOWN INDICATION
     Dosage: 500 MG, QD (0 ? 0 ?1)
     Route: 065
     Dates: start: 20200623, end: 20200623
  4. NOVALGIN [Concomitant]
     Indication: PRODUCT USED FOR UNKNOWN INDICATION
     Dosage: UNK
     Route: 065
  5. EUTHYROX [Concomitant]
     Active Substance: LEVOTHYROXINE SODIUM
     Indication: PRODUCT USED FOR UNKNOWN INDICATION
     Dosage: UNK
     Route: 065
  6. TRULICITY [Concomitant]
     Active Substance: DULAGLUTIDE
     Indication: PRODUCT USED FOR UNKNOWN INDICATION
     Dosage: UNK
     Route: 065
  7. LASIX [Concomitant]
     Active Substance: FUROSEMIDE
     Indication: PRODUCT USED FOR UNKNOWN INDICATION
     Dosage: UNK
     Route: 065
  8. CIPROXIN [Concomitant]
     Active Substance: CIPROFLOXACIN
     Dosage: 500 MG, QD (1?0?0)
     Route: 065
     Dates: start: 20200625, end: 20200625
  9. TOUJEO [Concomitant]
     Active Substance: INSULIN GLARGINE
     Indication: PRODUCT USED FOR UNKNOWN INDICATION
     Dosage: UNK
     Route: 065
  10. EPORATIO [Concomitant]
     Active Substance: ERYTHROPOIETIN
     Indication: PRODUCT USED FOR UNKNOWN INDICATION
     Dosage: UNK
     Route: 065
  11. LANNAPRIL [Concomitant]
     Indication: PRODUCT USED FOR UNKNOWN INDICATION
     Dosage: UNK
     Route: 065
  12. ROSUVASTATIN SANDOZ [Suspect]
     Active Substance: ROSUVASTATIN CALCIUM
     Indication: PRODUCT USED FOR UNKNOWN INDICATION
     Dosage: UNK
     Route: 065
  13. ANAEROBEX [Concomitant]
     Active Substance: METRONIDAZOLE
     Dosage: 1500 MG, QD (1 ? 1 ? 1 (500?500?500))
     Route: 065
     Dates: start: 20200624, end: 20200624
  14. SPIRONOLACTON [Concomitant]
     Active Substance: SPIRONOLACTONE
     Indication: PRODUCT USED FOR UNKNOWN INDICATION
     Dosage: UNK
     Route: 065
  15. CIPROXIN [Concomitant]
     Active Substance: CIPROFLOXACIN
     Dosage: 1000 MG, QD (1 ? 0 ? 1)
     Route: 065
     Dates: start: 20200624, end: 20200624
  16. HYDAL [Concomitant]
     Active Substance: HYDROMORPHONE HYDROCHLORIDE
     Indication: PRODUCT USED FOR UNKNOWN INDICATION
     Dosage: UNK
     Route: 065
  17. SYNJARDY [Concomitant]
     Active Substance: EMPAGLIFLOZIN\METFORMIN HYDROCHLORIDE
     Indication: PRODUCT USED FOR UNKNOWN INDICATION
     Dosage: UNK
     Route: 065

REACTIONS (8)
  - Inflammatory marker increased [Recovered/Resolved]
  - Blood urea increased [Recovered/Resolved]
  - Malaise [Recovered/Resolved]
  - Blood creatine phosphokinase MB increased [Recovered/Resolved]
  - Blood creatinine increased [Recovered/Resolved]
  - Transaminases increased [Recovered/Resolved]
  - Blood creatine phosphokinase increased [Recovered/Resolved]
  - Myopathy [Recovered/Resolved]

NARRATIVE: CASE EVENT DATE: 202006
